FAERS Safety Report 20162534 (Version 2)
Quarter: 2021Q4

REPORT INFORMATION
  Report Type: Spontaneous
  Country: ES (occurrence: ES)
  Receive Date: 20211208
  Receipt Date: 20211216
  Transmission Date: 20220303
  Serious: Yes (Hospitalization)
  Sender: FDA-Public Use
  Company Number: None

PATIENT
  Age: 75 Year
  Sex: Female

DRUGS (11)
  1. GENOXAL [Suspect]
     Active Substance: CYCLOPHOSPHAMIDE
     Indication: B-cell lymphoma
     Dosage: C/21 DIAS
     Route: 042
     Dates: start: 20200702
  2. DOXORUBICIN HYDROCHLORIDE [Suspect]
     Active Substance: DOXORUBICIN HYDROCHLORIDE
     Indication: B-cell lymphoma
     Dosage: C/21 DIAS
     Route: 042
     Dates: start: 20210702
  3. PREDNISONE [Suspect]
     Active Substance: PREDNISONE
     Indication: B-cell lymphoma
     Dosage: C/21 DIAS
     Route: 042
     Dates: start: 20210702
  4. RITUXIMAB [Suspect]
     Active Substance: RITUXIMAB
     Indication: B-cell lymphoma
     Dosage: C/21 DIAS
     Route: 042
     Dates: start: 20210702
  5. VINCRISTINE [Suspect]
     Active Substance: VINCRISTINE
     Indication: B-cell lymphoma
     Dosage: C/21 DIAS
     Route: 042
     Dates: start: 20210702
  6. PROLIA [Concomitant]
     Active Substance: DENOSUMAB
     Indication: Crush injury
     Dosage: 60 MG INJECTABLE SOLUTION IN PRE-FILLED SYRINGE, ONE PRE-FILLED SYRINGE OF 1 ML
     Route: 058
     Dates: start: 20170215
  7. NALOXONE HYDROCHLORIDE\OXYCODONE HYDROCHLORIDE [Concomitant]
     Active Substance: NALOXONE HYDROCHLORIDE\OXYCODONE HYDROCHLORIDE
     Indication: Crush injury
     Dosage: 10 MG/5 MG PROLONGED-RELEASE TABLETS, 56 TABLETS
     Route: 048
     Dates: start: 20170214
  8. NALOXONE HYDROCHLORIDE\OXYCODONE HYDROCHLORIDE [Concomitant]
     Active Substance: NALOXONE HYDROCHLORIDE\OXYCODONE HYDROCHLORIDE
     Dosage: 5.0 MG CE, 5 MG/2.5 MG PROLONGED-RELEASE TABLETS, 56 TABLETS
     Route: 048
     Dates: start: 20170414
  9. CALCIUM CARBONATE\CHOLECALCIFEROL [Concomitant]
     Active Substance: CALCIUM CARBONATE\CHOLECALCIFEROL
     Indication: Crush injury
     Dosage: 1.0 TAB [D-CE]
     Route: 048
     Dates: start: 20160712
  10. PRIMPERAN [Concomitant]
     Active Substance: METOCLOPRAMIDE HYDROCHLORIDE
     Indication: Lymphoma
     Dosage: 10.0 MG [A-DECOCE], 10 MG TABLETS, 30 TABLETS
     Route: 048
     Dates: start: 20200702
  11. Pantoprazol Aurovitas [Concomitant]
     Indication: Gastritis
     Dosage: 40 MG DE, 40 MG EFG (EQUIVALENTE FARMACEUTICO GENERICO [GENERIC PHARMACEUTICAL EQUIVALENT]), 28 TABL
     Route: 048
     Dates: start: 20150604

REACTIONS (1)
  - Febrile neutropenia [Recovered/Resolved]

NARRATIVE: CASE EVENT DATE: 20200711
